FAERS Safety Report 6679522-9 (Version None)
Quarter: 2010Q2

REPORT INFORMATION
  Report Type: 
  Country: None (occurrence: None)
  Receive Date: 20100413
  Receipt Date: 20100401
  Transmission Date: 20101027
  Serious: Yes (Hospitalization, Other)
  Sender: FDA-Public Use
  Company Number: PHHY2010FR20282

PATIENT
  Sex: Male

DRUGS (6)
  1. GLEEVEC [Suspect]
     Indication: GASTROINTESTINAL STROMAL TUMOUR
     Dosage: 400 MG, UNK
     Route: 048
     Dates: start: 20071001, end: 20091030
  2. GLEEVEC [Suspect]
     Dosage: 800 MG, UNK
     Route: 048
     Dates: start: 20091110, end: 20091118
  3. GLEEVEC [Suspect]
     Dosage: 800 MG, UNK
     Route: 048
     Dates: start: 20091127
  4. SUTENT [Suspect]
     Dosage: UNK
     Dates: start: 20091030, end: 20091110
  5. COVERSYL                                /FRA/ [Concomitant]
     Dosage: 2.5 MG, UNK
  6. APROVEL [Concomitant]
     Dosage: 300 MG, UNK

REACTIONS (11)
  - ARTERIAL THROMBOSIS [None]
  - BIOPSY KIDNEY [None]
  - KIDNEY FIBROSIS [None]
  - METASTASES TO LIVER [None]
  - OEDEMA PERIPHERAL [None]
  - PROTEINURIA [None]
  - PRURITUS [None]
  - RENAL CYST [None]
  - RENAL FAILURE [None]
  - THROMBOTIC MICROANGIOPATHY [None]
  - VOMITING [None]
